FAERS Safety Report 4628549-7 (Version None)
Quarter: 2005Q2

REPORT INFORMATION
  Report Type: 
  Country: None (occurrence: None)
  Receive Date: 20050404
  Receipt Date: 20050325
  Transmission Date: 20051028
  Serious: Yes (Hospitalization)
  Sender: FDA-Public Use
  Company Number: 2005-03-0018

PATIENT
  Age: 39 Year
  Sex: Female

DRUGS (5)
  1. TEMODAL [Suspect]
     Indication: BRAIN NEOPLASM
     Dosage: 250 MG BID
     Dates: start: 20040923, end: 20040925
  2. TEMODAL [Suspect]
     Indication: BRAIN NEOPLASM
     Dosage: 250 MG BID
  3. CORTANCYL [Concomitant]
  4. POTASSIUM CHLORIDE [Concomitant]
  5. LANZOR [Concomitant]

REACTIONS (6)
  - BONE MARROW DEPRESSION [None]
  - BRONCHOPNEUMOPATHY [None]
  - HAEMATOTOXICITY [None]
  - PETECHIAE [None]
  - PURPURA [None]
  - VOMITING [None]
